FAERS Safety Report 5854052-2 (Version None)
Quarter: 2008Q3

REPORT INFORMATION
  Report Type: 
  Country: None (occurrence: None)
  Receive Date: 20080822
  Receipt Date: 20080807
  Transmission Date: 20090109
  Serious: Yes (Other)
  Sender: FDA-Public Use
  Company Number: ES-ROCHE-580423

PATIENT
  Age: 43 Year
  Sex: Male

DRUGS (6)
  1. PEGASYS [Suspect]
     Indication: HEPATITIS C
     Dosage: FORM: PREFILLED SYRINGES.
     Route: 058
     Dates: start: 20080418, end: 20080702
  2. COPEGUS [Interacting]
     Indication: HEPATITIS C
     Dosage: FORM:FILM COATED TABLETS.
     Route: 048
     Dates: start: 20080418, end: 20080702
  3. METHADONE HCL [Concomitant]
     Route: 048
  4. ESERTIA [Concomitant]
     Dosage: FORM: FILM COATED TABLET.
     Route: 048
  5. REXER [Concomitant]
     Route: 048
  6. CLORAZEPATE DIPOTASSIUM [Concomitant]
     Route: 048

REACTIONS (4)
  - ANAEMIA [None]
  - DRUG INTERACTION [None]
  - NEUTROPENIA [None]
  - PNEUMONIA [None]
